FAERS Safety Report 15852210 (Version 1)
Quarter: 2019Q1

REPORT INFORMATION
  Report Type: Spontaneous
  Country: US (occurrence: US)
  Receive Date: 20190122
  Receipt Date: 20190122
  Transmission Date: 20190417
  Serious: No
  Sender: FDA-Public Use
  Company Number: PHEH2019US002434

PATIENT
  Sex: Female

DRUGS (1)
  1. AZOPT [Suspect]
     Active Substance: BRINZOLAMIDE
     Indication: INTRAOCULAR PRESSURE INCREASED
     Route: 047

REACTIONS (4)
  - Eye irritation [Unknown]
  - Foreign body sensation in eyes [Unknown]
  - Intraocular pressure increased [Unknown]
  - Visual impairment [Unknown]
